FAERS Safety Report 12551510 (Version 3)
Quarter: 2016Q3

REPORT INFORMATION
  Report Type: Spontaneous
  Country: IT (occurrence: IT)
  Receive Date: 20160713
  Receipt Date: 20160729
  Transmission Date: 20161109
  Serious: Yes (Hospitalization, Other)
  Sender: FDA-Public Use
  Company Number: IT-ACCORD-042259

PATIENT
  Age: 65 Year
  Sex: Male
  Weight: 88 kg

DRUGS (2)
  1. OXALIPLATIN. [Suspect]
     Active Substance: OXALIPLATIN
     Indication: ADENOCARCINOMA OF COLON
     Dosage: THE PATIENT UNDERWENT CYCLE 5 AND 7 XELOX
     Route: 042
     Dates: start: 20151009
  2. CAPECITABINE. [Suspect]
     Active Substance: CAPECITABINE
     Indication: ADENOCARCINOMA OF COLON
     Dosage: THE PATIENT UNDERWENT CYCLE 5 AND 7 XELOX
     Route: 048
     Dates: start: 20151009

REACTIONS (4)
  - Fall [Unknown]
  - Dizziness [Recovering/Resolving]
  - Thrombocytopenia [Unknown]
  - Pain in extremity [Recovering/Resolving]

NARRATIVE: CASE EVENT DATE: 20160202
